FAERS Safety Report 13990457 (Version 2)
Quarter: 2017Q3

REPORT INFORMATION
  Report Type: Not Available
  Country: None (occurrence: US)
  Receive Date: 20170920
  Receipt Date: 20170920
  Transmission Date: 20171128
  Serious: No
  Sender: FDA-Public Use
  Company Number: US-AKORN-59720

PATIENT
  Sex: Female

DRUGS (1)
  1. NYSTATIN ORAL SUSPENSION, USP [Suspect]
     Active Substance: NYSTATIN

REACTIONS (2)
  - Nausea [Recovered/Resolved]
  - Asthma [Recovered/Resolved]
